FAERS Safety Report 16408112 (Version 1)
Quarter: 2019Q2

REPORT INFORMATION
  Report Type: Spontaneous
  Country: US (occurrence: US)
  Receive Date: 20190610
  Receipt Date: 20190610
  Transmission Date: 20190711
  Serious: Yes (Other)
  Sender: FDA-Public Use
  Company Number: US-JNJFOC-20190535901

PATIENT

DRUGS (6)
  1. RIFAMPIN. [Suspect]
     Active Substance: RIFAMPIN
     Indication: HIV INFECTION
     Route: 065
  2. PREZISTA [Suspect]
     Active Substance: DARUNAVIR ETHANOLATE
     Indication: HIV INFECTION
     Dosage: 600/100
     Route: 048
  3. PREZISTA [Suspect]
     Active Substance: DARUNAVIR ETHANOLATE
     Indication: TUBERCULOSIS
     Dosage: 600/100
     Route: 048
  4. PREZISTA [Suspect]
     Active Substance: DARUNAVIR ETHANOLATE
     Indication: HIV INFECTION
     Dosage: 1600/200
     Route: 048
  5. PREZISTA [Suspect]
     Active Substance: DARUNAVIR ETHANOLATE
     Indication: TUBERCULOSIS
     Dosage: 1600/200
     Route: 048
  6. RIFAMPIN. [Suspect]
     Active Substance: RIFAMPIN
     Indication: TUBERCULOSIS
     Route: 065

REACTIONS (4)
  - Liver function test abnormal [Unknown]
  - Hepatotoxicity [Unknown]
  - Product use issue [Unknown]
  - Off label use [Unknown]
